FAERS Safety Report 5112759-9 (Version None)
Quarter: 2006Q3

REPORT INFORMATION
  Report Type: 
  Country: None (occurrence: None)
  Receive Date: 20060919
  Receipt Date: 20060919
  Transmission Date: 20061208
  Serious: Yes (Other)
  Sender: FDA-Public Use
  Company Number: None

PATIENT
  Age: 50 Year
  Sex: Female

DRUGS (4)
  1. PPD TUBERCULIN PARKEDALE [Suspect]
     Route: 023
     Dates: start: 20060829
  2. PREMARIN [Concomitant]
  3. LEVOTHYROXINE SODIUM [Concomitant]
  4. CLELEBREX [Concomitant]

REACTIONS (3)
  - ERYTHEMA [None]
  - MYALGIA [None]
  - SKIN WARM [None]
